FAERS Safety Report 22609444 (Version 1)
Quarter: 2023Q2

REPORT INFORMATION
  Report Type: Spontaneous
  Country: US (occurrence: US)
  Receive Date: 20230616
  Receipt Date: 20230616
  Transmission Date: 20230721
  Serious: No
  Sender: FDA-Public Use
  Company Number: US-GSK-US2023GSK084561

PATIENT
  Age: 70 Year
  Sex: Female

DRUGS (4)
  1. WELLBUTRIN XL [Suspect]
     Active Substance: BUPROPION HYDROCHLORIDE
     Indication: Product used for unknown indication
     Dosage: 300 MG, QD
     Route: 048
  2. ARMOUR THYROID [Concomitant]
     Active Substance: THYROID, PORCINE
     Indication: Product used for unknown indication
     Dosage: 15 MG
  3. OTEZLA [Concomitant]
     Active Substance: APREMILAST
     Indication: Product used for unknown indication
     Dosage: UNK
  4. AMOXICILLIN [Concomitant]
     Active Substance: AMOXICILLIN
     Indication: Product used for unknown indication
     Dosage: UNK

REACTIONS (10)
  - Feeling abnormal [Unknown]
  - Feeling hot [Unknown]
  - Disturbance in attention [Unknown]
  - Lacrimation increased [Unknown]
  - Brain fog [Unknown]
  - Tinnitus [Unknown]
  - Dizziness [Unknown]
  - Fatigue [Unknown]
  - Dry mouth [Unknown]
  - Tremor [Unknown]

NARRATIVE: CASE EVENT DATE: 20230606
